FAERS Safety Report 16028811 (Version 2)
Quarter: 2019Q1

REPORT INFORMATION
  Report Type: Spontaneous
  Country: ES (occurrence: ES)
  Receive Date: 20190304
  Receipt Date: 20190304
  Transmission Date: 20190418
  Serious: Yes (Other)
  Sender: FDA-Public Use
  Company Number: PHHY2019ES046948

PATIENT
  Age: 7 Year
  Sex: Male

DRUGS (5)
  1. CICLOSPORIN [Suspect]
     Active Substance: CYCLOSPORINE
     Indication: STEM CELL TRANSPLANT
     Dosage: 40 MG, Q12H
     Route: 042
     Dates: start: 20170801
  2. FLUDARABINE PHOSPHATE. [Interacting]
     Active Substance: FLUDARABINE PHOSPHATE
     Indication: STEM CELL TRANSPLANT
     Dosage: 43 MG, QD
     Route: 042
     Dates: start: 20170729, end: 20170731
  3. TIOTEPA [Interacting]
     Active Substance: THIOTEPA
     Indication: STEM CELL TRANSPLANT
     Dosage: 112.5 MG, QD
     Route: 042
     Dates: start: 20170727, end: 20170728
  4. BUSULFANO [Interacting]
     Active Substance: BUSULFAN
     Indication: STEM CELL TRANSPLANT
     Dosage: 99 MG, QD
     Route: 042
     Dates: start: 20170729, end: 20170731
  5. METILPREDNISOLONA [Interacting]
     Active Substance: METHYLPREDNISOLONE
     Indication: STEM CELL TRANSPLANT
     Dosage: 11 MG, Q12H
     Route: 042
     Dates: start: 20170810

REACTIONS (2)
  - Stomatitis [Recovered/Resolved]
  - Rhinovirus infection [Recovered/Resolved]

NARRATIVE: CASE EVENT DATE: 20170812
